FAERS Safety Report 8136463-8 (Version None)
Quarter: 2012Q1

REPORT INFORMATION
  Report Type: 
  Country: None (occurrence: None)
  Receive Date: 20120214
  Receipt Date: 20120210
  Transmission Date: 20120608
  Serious: Yes (Other)
  Sender: FDA-Public Use
  Company Number: CHPA2011US12984

PATIENT
  Age: 66 Year
  Sex: Female

DRUGS (2)
  1. VOLTAREN [Suspect]
     Indication: COMPLEX REGIONAL PAIN SYNDROME
     Dosage: 2 G, BID
     Route: 061
     Dates: start: 20110601
  2. ASPIRIN [Concomitant]
     Dosage: 4 DF, QD

REACTIONS (14)
  - ABDOMINAL PAIN UPPER [None]
  - THROMBOSIS [None]
  - BLISTER [None]
  - PERIPHERAL COLDNESS [None]
  - SKIN EXFOLIATION [None]
  - BURNING SENSATION [None]
  - HAND DEFORMITY [None]
  - PURULENT DISCHARGE [None]
  - MUSCULOSKELETAL STIFFNESS [None]
  - HERPES ZOSTER [None]
  - CONCOMITANT DISEASE AGGRAVATED [None]
  - ERYTHEMA [None]
  - DRUG INEFFECTIVE FOR UNAPPROVED INDICATION [None]
  - THERAPEUTIC RESPONSE UNEXPECTED [None]
